FAERS Safety Report 5130369-4 (Version None)
Quarter: 2006Q4

REPORT INFORMATION
  Report Type: 
  Country: None (occurrence: None)
  Receive Date: 20061019
  Receipt Date: 20061012
  Transmission Date: 20070319
  Serious: Yes (Death, Other)
  Sender: FDA-Public Use
  Company Number: GB-PURDUE-GBR_2006_0002526

PATIENT
  Age: 35 Year
  Sex: Male
  Weight: 82 kg

DRUGS (2)
  1. OXYCONTIN [Suspect]
     Indication: PAIN
     Dosage: 10 MG, SINGLE
     Route: 048
     Dates: start: 20060409, end: 20060409
  2. DIAMORPHINE [Suspect]
     Indication: PAIN
     Dosage: 10 MG, SINGLE
     Route: 030
     Dates: start: 20060409, end: 20060409

REACTIONS (2)
  - DEATH [None]
  - DIARRHOEA [None]
